FAERS Safety Report 5028382-0 (Version None)
Quarter: 2006Q2

REPORT INFORMATION
  Report Type: 
  Country: None (occurrence: None)
  Receive Date: 20060613
  Receipt Date: 20060601
  Transmission Date: 20061013
  Serious: Yes (Hospitalization)
  Sender: FDA-Public Use
  Company Number: CERZ-11239

PATIENT
  Age: 82 Year
  Sex: Female
  Weight: 62 kg

DRUGS (9)
  1. CEREZYME [Suspect]
     Indication: GAUCHER'S DISEASE
     Dosage: 3800 UNITS Q2WKS IV
     Route: 042
     Dates: start: 19980730
  2. COUMADIN [Concomitant]
  3. PREVACID [Concomitant]
  4. LOMOTIL [Concomitant]
  5. CLONIDINE [Concomitant]
  6. LORAZEPAM [Concomitant]
  7. INSPRA [Concomitant]
  8. ALLOPURINOL [Concomitant]
  9. DIGOXIN [Concomitant]

REACTIONS (2)
  - GASTROINTESTINAL HAEMORRHAGE [None]
  - PROTHROMBIN TIME PROLONGED [None]
